FAERS Safety Report 4818920-2 (Version None)
Quarter: 2005Q4

REPORT INFORMATION
  Report Type: 
  Country: None (occurrence: None)
  Receive Date: 20051101
  Receipt Date: 20051020
  Transmission Date: 20060501
  Serious: Yes (Death, Other)
  Sender: FDA-Public Use
  Company Number: 2005137050

PATIENT
  Age: 73 Year
  Sex: Female
  Weight: 41.5 kg

DRUGS (6)
  1. CLINDAMYCIN PHOSPHATE [Suspect]
     Indication: PNEUMONIA BACTERIAL
     Dosage: 1.2 GRAM (600 MG, BID), INTRAVENOUS
     Route: 042
     Dates: start: 20041027, end: 20041111
  2. CEFMETAZON (CEFMETAZOLE SODIUM) (CEFMETAZOLE SODIUM) [Suspect]
     Indication: PNEUMONIA BACTERIAL
     Dosage: 2 GRAM (1 GRAM, BID), INTRAVENOUS
     Route: 042
     Dates: start: 20041009, end: 20041022
  3. MINOMYCIN (MINOCYCLINE HYDROCHLORIDE) (MINOCYCLINE HYDROCHLORIDE) [Suspect]
     Indication: PNEUMONIA BACTERIAL
     Dosage: 200 MG (100 MG, BID), INTRAVENOUS
     Route: 042
     Dates: start: 20041009, end: 20041027
  4. MEROPEN (MEROPENEM TRIHYDRATE) (MEROPENEM) [Suspect]
     Indication: PNEUMONIA BACTERIAL
     Dosage: 1 GRAM (500 MG, BID)
     Dates: start: 20041022, end: 20041111
  5. LOXONIN (LOXOPROFEN SODIUM) (LOXOPROFEN SODIUM) [Concomitant]
  6. SULPERAZON (SULBACTAM/ CEFOPERAZONE) (CEFOPERAZONE SODIUM, SULBACTAM S [Concomitant]

REACTIONS (12)
  - CATHETER RELATED INFECTION [None]
  - DIALYSIS [None]
  - DISSEMINATED INTRAVASCULAR COAGULATION [None]
  - DRUG HYPERSENSITIVITY [None]
  - ENDOCARDITIS [None]
  - ERYTHEMA [None]
  - HAEMODIALYSIS [None]
  - OLIGURIA [None]
  - PRURITUS [None]
  - RENAL IMPAIRMENT [None]
  - SEPTIC SHOCK [None]
  - TUBULOINTERSTITIAL NEPHRITIS [None]
